FAERS Safety Report 4902467-9 (Version None)
Quarter: 2006Q1

REPORT INFORMATION
  Report Type: 
  Country: None (occurrence: None)
  Receive Date: 20060207
  Receipt Date: 20060125
  Transmission Date: 20060701
  Serious: Yes (Other)
  Sender: FDA-Public Use
  Company Number: US-ABBOTT-06P-163-0323343-00

PATIENT
  Sex: Female
  Weight: 105 kg

DRUGS (6)
  1. DEPAKOTE ER [Suspect]
     Indication: SCHIZOPHRENIA
     Route: 048
     Dates: end: 20050801
  2. DEPAKOTE ER [Suspect]
     Route: 048
     Dates: start: 20050801, end: 20050829
  3. DEPAKOTE ER [Suspect]
     Route: 048
     Dates: start: 20050829
  4. CLOZAPINE [Suspect]
     Indication: SCHIZOPHRENIA
     Route: 048
     Dates: start: 20040220
  5. DOCUSATE SODIUM [Concomitant]
     Indication: CONSTIPATION PROPHYLAXIS
     Route: 048
  6. MINERAL OIL EMULSION [Concomitant]
     Indication: CONSTIPATION PROPHYLAXIS
     Dosage: 30CC IN AM ON MONDAY  AND

REACTIONS (1)
  - GRANULOCYTOPENIA [None]
